FAERS Safety Report 7986317-2 (Version None)
Quarter: 2011Q4

REPORT INFORMATION
  Report Type: 
  Country: None (occurrence: None)
  Receive Date: 20111216
  Receipt Date: 20110706
  Transmission Date: 20120403
  Serious: No
  Sender: FDA-Public Use
  Company Number: US-BRISTOL-MYERS SQUIBB COMPANY-15878069

PATIENT
  Age: 6 Year
  Sex: Male
  Weight: 23 kg

DRUGS (3)
  1. LEXAPRO [Concomitant]
  2. ABILIFY [Suspect]
     Indication: ABNORMAL BEHAVIOUR
     Dosage: HALF A TABLET FOR A MONTH AND INCREASED A WEEK AGO
  3. ABILIFY [Suspect]
     Indication: AUTISM
     Dosage: HALF A TABLET FOR A MONTH AND INCREASED A WEEK AGO

REACTIONS (1)
  - TIC [None]
